FAERS Safety Report 6890319-7 (Version None)
Quarter: 2010Q3

REPORT INFORMATION
  Report Type: 
  Country: None (occurrence: None)
  Receive Date: 20100730
  Receipt Date: 20080929
  Transmission Date: 20110219
  Serious: No
  Sender: FDA-Public Use
  Company Number: US-PFIZER INC-2008082107

PATIENT
  Sex: Female
  Weight: 68.181 kg

DRUGS (18)
  1. LIPITOR [Suspect]
     Indication: BLOOD CHOLESTEROL INCREASED
     Route: 048
  2. BENAZEPRIL HYDROCHLORIDE [Concomitant]
  3. CLONAZEPAM [Concomitant]
  4. CELEBREX [Concomitant]
  5. ACETAMINOPHEN [Concomitant]
  6. FOLIC ACID [Concomitant]
  7. GLUCOTROL XL [Concomitant]
  8. LYRICA [Concomitant]
  9. MULTI-VITAMINS [Concomitant]
  10. ICAPS [Concomitant]
  11. ASCORBIC ACID [Concomitant]
  12. VITAMIN D [Concomitant]
  13. VITAMIN E [Concomitant]
  14. FISH OIL [Concomitant]
  15. VITAMIN B6 [Concomitant]
  16. VITAMIN B-12 [Concomitant]
  17. CALCIUM MAGNESIUM ZINC [Concomitant]
  18. ACETYLSALICYLIC ACID SRT [Concomitant]

REACTIONS (3)
  - EXPIRED DRUG ADMINISTERED [None]
  - LYMPHOEDEMA [None]
  - WEIGHT INCREASED [None]
